FAERS Safety Report 8312481-1 (Version None)
Quarter: 2012Q2

REPORT INFORMATION
  Report Type: 
  Country: None (occurrence: None)
  Receive Date: 20120425
  Receipt Date: 20120416
  Transmission Date: 20120825
  Serious: Yes (Hospitalization, Other)
  Sender: FDA-Public Use
  Company Number: US-MERCK-1110USA00798

PATIENT
  Age: 62 Year
  Sex: Female
  Weight: 66 kg

DRUGS (27)
  1. FOSAMAX [Suspect]
     Route: 048
  2. ALENDRONATE SODIUM [Suspect]
     Route: 048
     Dates: start: 20090801
  3. NORTRIPTYLINE [Concomitant]
     Route: 065
  4. DOXEPIN HYDROCHLORIDE [Concomitant]
     Route: 065
     Dates: end: 20021026
  5. FOSAMAX [Suspect]
     Indication: OSTEOPOROSIS
     Route: 048
     Dates: start: 19990701, end: 20080201
  6. FOSAMAX [Suspect]
     Route: 048
     Dates: start: 20080201
  7. FOSAMAX [Suspect]
     Route: 048
     Dates: start: 20081201
  8. ALENDRONATE SODIUM [Suspect]
     Route: 048
     Dates: start: 20090801
  9. TRAZODONE HYDROCHLORIDE [Concomitant]
     Route: 048
     Dates: start: 20001027
  10. EVISTA [Concomitant]
     Route: 048
     Dates: start: 20020424, end: 20020816
  11. NASONEX [Concomitant]
     Route: 055
  12. ALENDRONATE SODIUM [Suspect]
     Indication: OSTEOPOROSIS
     Route: 048
     Dates: start: 20080901
  13. ALENDRONATE SODIUM [Suspect]
     Route: 048
     Dates: start: 20091101
  14. TRAMADOL HYDROCHLORIDE [Concomitant]
     Route: 065
  15. FOSAMAX [Suspect]
     Route: 048
     Dates: start: 20081201
  16. ALENDRONATE SODIUM [Suspect]
     Indication: OSTEOPENIA
     Route: 048
     Dates: start: 20080901
  17. AMITRIPTYLINE HYDROCHLORIDE [Concomitant]
     Route: 048
  18. PRILOSEC [Concomitant]
     Route: 065
     Dates: start: 19900101
  19. FOSAMAX [Suspect]
     Route: 048
     Dates: start: 20080201
  20. FLEXERIL [Concomitant]
     Route: 048
  21. FOSAMAX [Suspect]
     Indication: OSTEOPENIA
     Route: 048
     Dates: start: 19990701, end: 20080201
  22. ALENDRONATE SODIUM [Suspect]
     Route: 048
     Dates: start: 20091101
  23. PROZAC [Concomitant]
     Route: 065
  24. CELEBREX [Suspect]
     Route: 065
  25. TYLENOL (CAPLET) [Concomitant]
     Route: 065
  26. FOSAMAX [Suspect]
     Route: 048
  27. OMEPRAZOLE [Concomitant]
     Route: 065

REACTIONS (52)
  - FEMUR FRACTURE [None]
  - BREAST DISORDER [None]
  - ABDOMINAL DISTENSION [None]
  - INTERVERTEBRAL DISC PROTRUSION [None]
  - HYPERTENSION [None]
  - HYPERCHOLESTEROLAEMIA [None]
  - NASAL DISCOMFORT [None]
  - URINARY TRACT INFECTION [None]
  - PAIN IN EXTREMITY [None]
  - ABDOMINAL DISCOMFORT [None]
  - INSOMNIA [None]
  - BREAST DISCOMFORT [None]
  - CARPAL TUNNEL SYNDROME [None]
  - SLEEP DISORDER [None]
  - SINUS BRADYCARDIA [None]
  - DEPRESSION [None]
  - ARTHROPATHY [None]
  - OVERDOSE [None]
  - BREAST ENLARGEMENT [None]
  - DRUG HYPERSENSITIVITY [None]
  - GLUCOSE TOLERANCE IMPAIRED [None]
  - NEUROPATHY PERIPHERAL [None]
  - UTERINE DISORDER [None]
  - INTERVERTEBRAL DISC DEGENERATION [None]
  - DYSPHAGIA [None]
  - NECK PAIN [None]
  - WEIGHT INCREASED [None]
  - ANXIETY [None]
  - LIPOMA [None]
  - RIB FRACTURE [None]
  - BLOOD PRESSURE SYSTOLIC INCREASED [None]
  - BACK PAIN [None]
  - ARTHRALGIA [None]
  - BURSITIS [None]
  - SINUSITIS [None]
  - CATARACT [None]
  - GRIEF REACTION [None]
  - GALLBLADDER DISORDER [None]
  - LARYNGITIS [None]
  - NERVOUSNESS [None]
  - JAW DISORDER [None]
  - INTERVERTEBRAL DISC SPACE NARROWING [None]
  - OSTEOARTHRITIS [None]
  - BASAL CELL CARCINOMA [None]
  - DRUG INEFFECTIVE [None]
  - HEADACHE [None]
  - MUSCULOSKELETAL PAIN [None]
  - DIARRHOEA [None]
  - AGGRESSION [None]
  - NEPHROLITHIASIS [None]
  - WEIGHT LOSS POOR [None]
  - ROTATOR CUFF SYNDROME [None]
